FAERS Safety Report 20994035 (Version 1)
Quarter: 2022Q2

REPORT INFORMATION
  Report Type: Spontaneous
  Country: DE (occurrence: DE)
  Receive Date: 20220622
  Receipt Date: 20220622
  Transmission Date: 20220720
  Serious: Yes (Other)
  Sender: FDA-Public Use
  Company Number: DE-CELLTRION HEALTHCARE HUNGARY KFT-2022DE008360

PATIENT

DRUGS (1)
  1. ADALIMUMAB [Suspect]
     Active Substance: ADALIMUMAB
     Indication: Ankylosing spondylitis
     Dosage: UNK,SOLUTION FOR INJECTION

REACTIONS (5)
  - Mycobacterium marinum infection [Recovering/Resolving]
  - Skin ulcer [Recovering/Resolving]
  - Granuloma [Unknown]
  - Inflammation [Unknown]
  - Skin lesion [Recovering/Resolving]
